FAERS Safety Report 19443587 (Version 2)
Quarter: 2021Q3

REPORT INFORMATION
  Report Type: Spontaneous
  Country: US (occurrence: US)
  Receive Date: 20210621
  Receipt Date: 20210811
  Transmission Date: 20211014
  Serious: Yes (Other)
  Sender: FDA-Public Use
  Company Number: US-IMPRIMIS NJOF-2112939

PATIENT
  Age: 81 Year
  Sex: Male

DRUGS (1)
  1. CYCLOSPORINE/CHONDROITIN SULFATE PF [Suspect]
     Active Substance: CYCLOSPORINE
     Route: 047

REACTIONS (1)
  - Rash [Recovering/Resolving]
